FAERS Safety Report 4722013-2 (Version None)
Quarter: 2005Q3

REPORT INFORMATION
  Report Type: 
  Country: None (occurrence: None)
  Receive Date: 20050722
  Receipt Date: 20050621
  Transmission Date: 20060218
  Serious: Yes (Death, Hospitalization)
  Sender: FDA-Public Use
  Company Number: JP-SANOFI-SYNTHELABO-A01200504338

PATIENT
  Sex: Female

DRUGS (14)
  1. KAYEXALATE [Suspect]
     Indication: HYPERKALAEMIA
     Dosage: 15 G
     Route: 048
     Dates: start: 19970118, end: 19990802
  2. KALIMATE [Suspect]
     Indication: HYPERKALAEMIA
     Dosage: 15 G
     Route: 048
     Dates: start: 19850703, end: 19970117
  3. KALIMATE [Suspect]
     Dosage: 15 G
     Route: 048
     Dates: start: 19990803, end: 20031009
  4. SORBITOL [Suspect]
     Indication: CONSTIPATION
     Dosage: 15 G
     Route: 048
     Dates: start: 19850703, end: 19970117
  5. CRAVIT [Concomitant]
     Indication: ABDOMINAL PAIN
     Dosage: 200 MG
     Route: 065
     Dates: start: 20031007, end: 20031010
  6. PURSENNID [Concomitant]
     Indication: CONSTIPATION
     Dosage: 12 MG
     Route: 065
     Dates: end: 20031207
  7. LOXONIN [Concomitant]
     Indication: BACK PAIN
     Dosage: 60 MG
     Route: 065
     Dates: start: 19970101, end: 20031207
  8. LOXONIN [Concomitant]
     Indication: ARTHRALGIA
     Dosage: 60 MG
     Route: 065
     Dates: start: 19970101, end: 20031207
  9. SALOBEL [Concomitant]
     Indication: HYPERURICAEMIA
     Dosage: 100 MG
     Route: 065
     Dates: end: 20031207
  10. TAKEPRON [Concomitant]
     Indication: ATRIAL TACHYCARDIA
     Dosage: 30 MG
     Route: 065
     Dates: start: 20030506, end: 20031207
  11. ALFAROL [Concomitant]
     Indication: HYPERCALCAEMIA
     Dosage: 0.25 MCG
     Route: 065
     Dates: end: 20031207
  12. BIOFERMIN [Concomitant]
     Indication: CONSTIPATION
     Dosage: 3 G
     Route: 065
     Dates: end: 20031207
  13. DROXIDOPA [Concomitant]
     Indication: HYPOTENSION
     Dosage: 100 MG
     Route: 065
  14. METLIGINE [Concomitant]
     Indication: HYPOTENSION
     Dosage: 2 MG
     Route: 065
     Dates: end: 20031206

REACTIONS (5)
  - COLONIC STENOSIS [None]
  - INTESTINAL OBSTRUCTION [None]
  - LARGE INTESTINE PERFORATION [None]
  - MELAENA [None]
  - PERITONITIS [None]
